FAERS Safety Report 6507667 (Version 6)
Quarter: 2020Q3

REPORT INFORMATION
  Report Type: Report from Study
  Country: US (occurrence: US)
  Receive Date: 20071218
  Receipt Date: 20111130
  Transmission Date: 20201105
  Serious: Yes (Hospitalization, Other)
  Sender: FDA-Public Use
  Company Number: US-JNJFOC-20071110596

PATIENT
  Age: 45 Year
  Sex: Female
  Weight: 58.97 kg

DRUGS (2)
  1. PROPULSID [Suspect]
     Active Substance: CISAPRIDE
     Indication: GASTROINTESTINAL DISORDER
     Route: 048
     Dates: start: 20010509
  2. PROPULSID [Suspect]
     Active Substance: CISAPRIDE
     Route: 048

REACTIONS (1)
  - Electrocardiogram QT prolonged [Recovered/Resolved]

NARRATIVE: CASE EVENT DATE: 20040514
